FAERS Safety Report 9587490 (Version 1)
Quarter: 2013Q4

REPORT INFORMATION
  Report Type: Spontaneous
  Country: CA (occurrence: CA)
  Receive Date: 20131003
  Receipt Date: 20131003
  Transmission Date: 20140711
  Serious: Yes (Other)
  Sender: FDA-Public Use
  Company Number: CA-MERCK-1310CAN000573

PATIENT
  Age: 53 Year
  Sex: Female
  Weight: 68 kg

DRUGS (2)
  1. REMERON [Suspect]
     Indication: PRODUCT USED FOR UNKNOWN INDICATION
     Dosage: 15 MG, QD
     Route: 065
  2. REMERON [Suspect]
     Dosage: 7.5 MG, QD
     Route: 065

REACTIONS (4)
  - Dyskinesia [Recovered/Resolved]
  - Irritability [Recovered/Resolved]
  - Postictal state [Recovered/Resolved]
  - Tonic convulsion [Recovered/Resolved]
